FAERS Safety Report 14298995 (Version 1)
Quarter: 2017Q4

REPORT INFORMATION
  Report Type: Spontaneous
  Country: US (occurrence: US)
  Receive Date: 20171217
  Receipt Date: 20171217
  Transmission Date: 20180321
  Serious: Yes (Other)
  Sender: FDA-Public Use
  Company Number: None

PATIENT
  Age: 18 Year
  Sex: Female
  Weight: 54 kg

DRUGS (5)
  1. AZITHROMYCIN ANHYDROUS. [Suspect]
     Active Substance: AZITHROMYCIN ANHYDROUS
     Indication: SINUSITIS
     Dosage: ?          QUANTITY:1 TABLET(S);?
     Route: 048
     Dates: start: 20171216, end: 20171216
  2. DUAC (GENERIC) [Concomitant]
  3. DEXTROMETHORPHAN HYDROBROMIDE. [Concomitant]
     Active Substance: DEXTROMETHORPHAN HYDROBROMIDE
  4. DIMETAPP [Concomitant]
     Active Substance: BROMPHENIRAMINE\PSEUDOEPHEDRINE
  5. EMERGEN C [Concomitant]
     Active Substance: MINERALS\VITAMINS

REACTIONS (5)
  - Blood pressure decreased [None]
  - Dizziness [None]
  - Loss of consciousness [None]
  - Hyperhidrosis [None]
  - Abdominal pain [None]

NARRATIVE: CASE EVENT DATE: 20171216
